FAERS Safety Report 4313574-6 (Version None)
Quarter: 2004Q1

REPORT INFORMATION
  Report Type: 
  Country: None (occurrence: None)
  Receive Date: 20040304
  Receipt Date: 20040212
  Transmission Date: 20041129
  Serious: Yes (Death, Hospitalization)
  Sender: FDA-Public Use
  Company Number: USA040259216

PATIENT
  Age: 25 Year
  Sex: Female

DRUGS (3)
  1. PROZAC [Suspect]
     Dosage: 20 MG/DAY
     Dates: end: 20030817
  2. ZYPREXA [Suspect]
     Dosage: 5 MG/DAY
     Dates: start: 20020314, end: 20030817
  3. SEROQUEL [Concomitant]

REACTIONS (2)
  - DIABETIC KETOACIDOSIS [None]
  - WEIGHT INCREASED [None]
